FAERS Safety Report 11992455 (Version 2)
Quarter: 2016Q1

REPORT INFORMATION
  Report Type: Spontaneous
  Country: US (occurrence: US)
  Receive Date: 20160203
  Receipt Date: 20160304
  Transmission Date: 20160526
  Serious: Yes (Hospitalization)
  Sender: FDA-Public Use
  Company Number: US-BEH-2016058204

PATIENT
  Age: 68 Year
  Sex: Male
  Weight: 97 kg

DRUGS (19)
  1. HIZENTRA [Suspect]
     Active Substance: HUMAN IMMUNOGLOBULIN G
     Route: 058
     Dates: start: 20131226
  2. AMITRIPTYLINE [Concomitant]
     Active Substance: AMITRIPTYLINE
  3. LORATADINE. [Concomitant]
     Active Substance: LORATADINE
  4. AFRIN [Concomitant]
     Active Substance: OXYMETAZOLINE
  5. NEILMED [Concomitant]
  6. ULORIC [Concomitant]
     Active Substance: FEBUXOSTAT
  7. SIMVASTATIN. [Concomitant]
     Active Substance: SIMVASTATIN
  8. CENTRUM SILVER [Concomitant]
     Active Substance: MINERALS\VITAMINS
  9. ADVAIR HFA [Concomitant]
     Active Substance: FLUTICASONE PROPIONATE\SALMETEROL XINAFOATE
  10. HIZENTRA [Suspect]
     Active Substance: HUMAN IMMUNOGLOBULIN G
     Indication: IMMUNODEFICIENCY COMMON VARIABLE
     Dosage: 4 GM 20 ML VIALS
     Route: 058
     Dates: start: 20131226
  11. COLCRYS [Concomitant]
     Active Substance: COLCHICINE
  12. METOPROLOL. [Concomitant]
     Active Substance: METOPROLOL
  13. ASPIRIN. [Concomitant]
     Active Substance: ASPIRIN
  14. DIPHENHYDRAMINE. [Concomitant]
     Active Substance: DIPHENHYDRAMINE
  15. LMX [Concomitant]
     Active Substance: LIDOCAINE
  16. ZETIA [Concomitant]
     Active Substance: EZETIMIBE
  17. LISINOPRIL. [Concomitant]
     Active Substance: LISINOPRIL
  18. EPIPEN [Concomitant]
     Active Substance: EPINEPHRINE
  19. GABAPENTIN. [Concomitant]
     Active Substance: GABAPENTIN

REACTIONS (2)
  - Carotid artery occlusion [Unknown]
  - Cerebrovascular accident [Recovered/Resolved]

NARRATIVE: CASE EVENT DATE: 20160104
